FAERS Safety Report 9130849 (Version 1)
Quarter: 2013Q1

REPORT INFORMATION
  Report Type: Spontaneous
  Country: US (occurrence: US)
  Receive Date: 20130301
  Receipt Date: 20130301
  Transmission Date: 20140127
  Serious: No
  Sender: FDA-Public Use
  Company Number: US-009507513-1302USA011474

PATIENT
  Sex: Male

DRUGS (1)
  1. FINASTERIDE [Suspect]
     Dosage: UNK
     Route: 048
     Dates: start: 20130208

REACTIONS (1)
  - Alopecia [Unknown]
